FAERS Safety Report 7934371-6 (Version None)
Quarter: 2011Q4

REPORT INFORMATION
  Report Type: 
  Country: None (occurrence: None)
  Receive Date: 20111122
  Receipt Date: 20110307
  Transmission Date: 20120403
  Serious: Yes (Hospitalization)
  Sender: FDA-Public Use
  Company Number: US-GLAXOSMITHKLINE-A0917672A

PATIENT
  Age: 65 Year
  Sex: Male

DRUGS (1)
  1. AVANDIA [Suspect]
     Indication: DIABETES MELLITUS
     Dosage: 4MG PER DAY
     Route: 048
     Dates: start: 20050222, end: 20050620

REACTIONS (5)
  - THROMBOSIS [None]
  - CARDIAC FAILURE CONGESTIVE [None]
  - DEVICE OCCLUSION [None]
  - CORONARY ARTERY DISEASE [None]
  - FATIGUE [None]
